FAERS Safety Report 6986918-4 (Version None)
Quarter: 2010Q3

REPORT INFORMATION
  Report Type: 
  Country: None (occurrence: None)
  Receive Date: 20100915
  Receipt Date: 20090818
  Transmission Date: 20110219
  Serious: No
  Sender: FDA-Public Use
  Company Number: US-WYE-H10637409

PATIENT
  Sex: Female
  Weight: 66.74 kg

DRUGS (4)
  1. PRISTIQ [Suspect]
     Indication: DEPRESSION
     Route: 048
     Dates: start: 20090814
  2. IRON [Concomitant]
  3. SIMVASTATIN [Concomitant]
  4. VERAPAMIL [Concomitant]

REACTIONS (7)
  - CONDITION AGGRAVATED [None]
  - CONSTIPATION [None]
  - DYSPEPSIA [None]
  - HOT FLUSH [None]
  - HYPERHIDROSIS [None]
  - INSOMNIA [None]
  - TACHYCARDIA [None]
